FAERS Safety Report 22064796 (Version 1)
Quarter: 2023Q1

REPORT INFORMATION
  Report Type: Spontaneous
  Country: US (occurrence: US)
  Receive Date: 20230306
  Receipt Date: 20230306
  Transmission Date: 20230418
  Serious: No
  Sender: FDA-Public Use
  Company Number: US-GE HEALTHCARE-2023CSU000131

PATIENT
  Sex: Female

DRUGS (2)
  1. GADOLINIUM [Suspect]
     Active Substance: GADOLINIUM
     Indication: Diagnostic procedure
     Dosage: UNK UNK, SINGLE
     Route: 042
  2. GADOLINIUM [Suspect]
     Active Substance: GADOLINIUM
     Indication: Product used for unknown indication

REACTIONS (3)
  - Vomiting [Unknown]
  - Pruritus [Unknown]
  - Nausea [Unknown]
